FAERS Safety Report 4844982-2 (Version None)
Quarter: 2005Q4

REPORT INFORMATION
  Report Type: 
  Country: None (occurrence: None)
  Receive Date: 20051205
  Receipt Date: 20051004
  Transmission Date: 20060501
  Serious: Yes (Other)
  Sender: FDA-Public Use
  Company Number: US-MERCK-0510USA02315

PATIENT
  Age: 62 Year
  Sex: Female

DRUGS (2)
  1. VIOXX [Suspect]
     Indication: MUSCLE SPASMS
     Route: 048
     Dates: start: 20020101, end: 20030101
  2. TYLENOL [Concomitant]
     Route: 065

REACTIONS (4)
  - CHEST PAIN [None]
  - DYSPNOEA [None]
  - INSOMNIA [None]
  - MYOCARDIAL INFARCTION [None]
